FAERS Safety Report 8444531-6 (Version None)
Quarter: 2012Q2

REPORT INFORMATION
  Report Type: 
  Country: None (occurrence: None)
  Receive Date: 20120618
  Receipt Date: 20120607
  Transmission Date: 20120825
  Serious: Yes (Hospitalization)
  Sender: FDA-Public Use
  Company Number: IT-ASTRAZENECA-2012SE38377

PATIENT
  Age: 33071 Day
  Sex: Female

DRUGS (9)
  1. RAMIPRIL [Concomitant]
     Route: 048
  2. LASIX [Concomitant]
     Route: 048
  3. BISOPROLOL FUMARATE [Concomitant]
  4. SEROQUEL [Suspect]
     Route: 048
     Dates: start: 20100101, end: 20120405
  5. MINITRAN [Concomitant]
     Dosage: 10 MG/24 H
     Route: 062
  6. ALDACTONE [Concomitant]
     Indication: HYPERTENSION
     Route: 048
  7. ALLOPURINOL [Concomitant]
  8. RABEPRAZOLE SODIUM [Concomitant]
  9. ASPIRIN [Concomitant]

REACTIONS (1)
  - SOPOR [None]
